FAERS Safety Report 10017755 (Version 2)
Quarter: 2014Q1

REPORT INFORMATION
  Report Type: Spontaneous
  Country: US (occurrence: US)
  Receive Date: 20140318
  Receipt Date: 20140318
  Transmission Date: 20141002
  Serious: Yes (Other)
  Sender: FDA-Public Use
  Company Number: US-BRISTOL-MYERS SQUIBB COMPANY-18797928

PATIENT
  Age: 60 Year
  Sex: Female

DRUGS (9)
  1. ERBITUX [Suspect]
     Indication: HEAD AND NECK CANCER
     Route: 042
     Dates: start: 20130107
  2. ERBITUX [Suspect]
     Indication: LARYNGEAL CANCER
     Route: 042
     Dates: start: 20130107
  3. DECADRON [Concomitant]
     Indication: PREMEDICATION
  4. BENADRYL [Concomitant]
     Indication: PREMEDICATION
  5. TYLENOL [Concomitant]
     Indication: PREMEDICATION
  6. TAGAMET [Concomitant]
     Indication: PREMEDICATION
  7. ASPIRIN [Concomitant]
  8. INSULIN [Concomitant]
  9. NIMESULIDE [Concomitant]

REACTIONS (1)
  - Anaphylactic reaction [Unknown]
